FAERS Safety Report 24907890 (Version 1)
Quarter: 2025Q1

REPORT INFORMATION
  Report Type: Spontaneous
  Country: US (occurrence: US)
  Receive Date: 20250131
  Receipt Date: 20250131
  Transmission Date: 20250408
  Serious: No
  Sender: CSL BEHRING
  Company Number: US-BEH-2025193354

PATIENT
  Age: 50 Year
  Sex: Female

DRUGS (25)
  1. HIZENTRA [Suspect]
     Active Substance: HUMAN IMMUNOGLOBULIN G
     Indication: Combined immunodeficiency
     Route: 065
  2. ALBUTEROL SULFATE [Concomitant]
     Active Substance: ALBUTEROL SULFATE
  3. AMITRIPTYLINE [Concomitant]
     Active Substance: AMITRIPTYLINE
  4. Aspirin chemipharm [Concomitant]
  5. BUSPIRONE HCL [Concomitant]
     Active Substance: BUSPIRONE HYDROCHLORIDE
  6. CLONAZEPAM [Concomitant]
     Active Substance: CLONAZEPAM
  7. CYMBALTA [Concomitant]
     Active Substance: DULOXETINE HYDROCHLORIDE
  8. CYTOMEL [Concomitant]
     Active Substance: LIOTHYRONINE SODIUM
  9. DIFLUCAN [Concomitant]
     Active Substance: FLUCONAZOLE
  10. FOLIC ACID [Concomitant]
     Active Substance: FOLIC ACID
  11. GABAPENTIN [Concomitant]
     Active Substance: GABAPENTIN
  12. HYOSCYAMINE [Concomitant]
     Active Substance: HYOSCYAMINE
  13. MELOXICAM [Concomitant]
     Active Substance: MELOXICAM
  14. MICROGESTIN [Concomitant]
     Active Substance: ETHINYL ESTRADIOL\NORETHINDRONE ACETATE
  15. MODAFINIL [Concomitant]
     Active Substance: MODAFINIL
  16. MONTELUKAST [Concomitant]
     Active Substance: MONTELUKAST
  17. MUPIROCIN [Concomitant]
     Active Substance: MUPIROCIN
  18. NYSTATIN [Concomitant]
     Active Substance: NYSTATIN
  19. ONDANSETRON [Concomitant]
     Active Substance: ONDANSETRON
  20. PROBIOTICS NOS [Concomitant]
     Active Substance: PROBIOTICS NOS
  21. RITALIN [Concomitant]
     Active Substance: METHYLPHENIDATE HYDROCHLORIDE
  22. VENTOLIN HFA [Concomitant]
     Active Substance: ALBUTEROL SULFATE
  23. VITAMIN D3 [Concomitant]
     Active Substance: CHOLECALCIFEROL
  24. XOLAIR [Concomitant]
     Active Substance: OMALIZUMAB
  25. ZYRTEC [Concomitant]
     Active Substance: CETIRIZINE HYDROCHLORIDE

REACTIONS (3)
  - Bronchitis [Unknown]
  - Sinusitis [Unknown]
  - Tonsillitis streptococcal [Unknown]
